FAERS Safety Report 7075183-8 (Version None)
Quarter: 2010Q4

REPORT INFORMATION
  Report Type: 
  Country: None (occurrence: None)
  Receive Date: 20101029
  Receipt Date: 20100416
  Transmission Date: 20110411
  Serious: No
  Sender: FDA-Public Use
  Company Number: US-WYE-H14770410

PATIENT

DRUGS (2)
  1. ALAVERT [Suspect]
     Dosage: UNKNOWN
     Route: 048
  2. NASONEX [Concomitant]

REACTIONS (1)
  - DIZZINESS [None]
